FAERS Safety Report 7518751-9 (Version None)
Quarter: 2011Q2

REPORT INFORMATION
  Report Type: 
  Country: None (occurrence: None)
  Receive Date: 20110523
  Receipt Date: 20110506
  Transmission Date: 20111010
  Serious: Yes (Other)
  Sender: FDA-Public Use
  Company Number: LTI2011A00113

PATIENT
  Age: 70 Year
  Sex: Male

DRUGS (3)
  1. BYETTA (EXENATIDE) (ORAL ANTIDIABETICS) [Concomitant]
  2. JANUVIA (SITAGLIPTINE) (ORAL ANTIDIABETICS) [Concomitant]
  3. ACTOS [Suspect]
     Indication: TYPE 2 DIABETES MELLITUS
     Dosage: ORAL
     Route: 048
     Dates: start: 20070101

REACTIONS (1)
  - BLADDER CANCER [None]
